FAERS Safety Report 9500624 (Version 4)
Quarter: 2013Q4

REPORT INFORMATION
  Report Type: Spontaneous
  Country: IT (occurrence: IT)
  Receive Date: 20130905
  Receipt Date: 20131204
  Transmission Date: 20140711
  Serious: Yes (Death)
  Sender: FDA-Public Use
  Company Number: IT-ROCHE-1269879

PATIENT
  Age: 51 Year
  Sex: Female
  Weight: 69 kg

DRUGS (4)
  1. AVASTIN [Suspect]
     Indication: COLORECTAL CANCER METASTATIC
     Route: 042
     Dates: start: 20130415, end: 20130415
  2. FLUOROURACIL [Suspect]
     Indication: COLORECTAL CANCER METASTATIC
     Route: 042
     Dates: start: 20130320, end: 20130417
  3. FLUOROURACIL [Suspect]
     Route: 042
     Dates: start: 20130320, end: 20130417
  4. IRINOTECAN [Suspect]
     Indication: COLORECTAL CANCER METASTATIC
     Route: 042
     Dates: start: 20130320, end: 20130415

REACTIONS (4)
  - Vomiting [Fatal]
  - Diarrhoea [Fatal]
  - Loss of consciousness [Fatal]
  - Coma [Fatal]
